FAERS Safety Report 11617206 (Version 3)
Quarter: 2015Q4

REPORT INFORMATION
  Report Type: Spontaneous
  Country: JP (occurrence: JP)
  Receive Date: 20151009
  Receipt Date: 20151103
  Transmission Date: 20160304
  Serious: No
  Sender: FDA-Public Use
  Company Number: JP-ASTRAZENECA-2015SE96573

PATIENT
  Sex: Female

DRUGS (8)
  1. LOXONIN [Concomitant]
     Active Substance: LOXOPROFEN SODIUM
     Route: 065
     Dates: start: 20150924
  2. URSO [Concomitant]
     Active Substance: URSODIOL
     Route: 065
     Dates: start: 20150730, end: 20150827
  3. SELBEX [Concomitant]
     Active Substance: TEPRENONE
     Route: 065
     Dates: start: 20150924
  4. ZOLADEX [Suspect]
     Active Substance: GOSERELIN ACETATE
     Indication: BREAST CANCER
     Route: 058
  5. NAUZELIN [Concomitant]
     Active Substance: DOMPERIDONE
     Route: 065
     Dates: start: 20150909
  6. GLYCYRON [Concomitant]
     Active Substance: AMMONIUM GLYCYRRHIZATE\GLYCINE\METHIONINE
     Route: 065
     Dates: start: 20150827
  7. NOLVADEX [Suspect]
     Active Substance: TAMOXIFEN CITRATE
     Indication: BREAST CANCER
     Dosage: DOSE UNKNOWN
     Route: 048
     Dates: start: 20150730, end: 20150827
  8. URSO [Concomitant]
     Active Substance: URSODIOL
     Route: 065
     Dates: start: 20150917

REACTIONS (3)
  - Liver function test abnormal [Not Recovered/Not Resolved]
  - Alanine aminotransferase abnormal [Recovering/Resolving]
  - Aspartate aminotransferase abnormal [Recovering/Resolving]

NARRATIVE: CASE EVENT DATE: 20150827
